FAERS Safety Report 8163793-6 (Version None)
Quarter: 2012Q1

REPORT INFORMATION
  Report Type: 
  Country: None (occurrence: None)
  Receive Date: 20120224
  Receipt Date: 20120216
  Transmission Date: 20120608
  Serious: Yes (Other)
  Sender: FDA-Public Use
  Company Number: PHHY2012FR013828

PATIENT
  Age: 65 Year
  Sex: Male

DRUGS (1)
  1. ONBREZ [Suspect]
     Dosage: 150 UG, DAILY

REACTIONS (3)
  - NAUSEA [None]
  - VOMITING [None]
  - RESPIRATORY DISORDER [None]
